FAERS Safety Report 20484095 (Version 3)
Quarter: 2022Q1

REPORT INFORMATION
  Report Type: Other
  Country: PT (occurrence: None)
  Receive Date: 20220217
  Receipt Date: 20220308
  Transmission Date: 20220423
  Serious: Yes (Life-Threatening, Other)
  Sender: FDA-Public Use
  Company Number: PT-ROCHE-3013702

PATIENT
  Age: 64 Year
  Sex: Female

DRUGS (7)
  1. TACROLIMUS [Suspect]
     Active Substance: TACROLIMUS
     Indication: Immunosuppression
     Route: 065
  2. BASILIXIMAB [Suspect]
     Active Substance: BASILIXIMAB
     Indication: Immunosuppression
     Route: 065
  3. MYCOPHENOLATE MOFETIL [Suspect]
     Active Substance: MYCOPHENOLATE MOFETIL
     Indication: Immunosuppression
     Route: 065
  4. PREDNISOLONE [Suspect]
     Active Substance: PREDNISOLONE
     Indication: Immunosuppression
     Route: 065
  5. GANCICLOVIR [Suspect]
     Active Substance: GANCICLOVIR
     Indication: Herpes sepsis
     Route: 065
  6. VALGANCICLOVIR [Concomitant]
     Active Substance: VALGANCICLOVIR
     Indication: Antiviral prophylaxis
     Route: 065
  7. CYCLOSPORINE [Concomitant]
     Active Substance: CYCLOSPORINE

REACTIONS (11)
  - Clostridium difficile infection [Recovered/Resolved]
  - Enterocolitis viral [Recovered/Resolved]
  - Intestinal pseudo-obstruction [Recovered/Resolved]
  - Human herpesvirus 6 infection reactivation [Recovering/Resolving]
  - Hepatic infection [Recovered/Resolved]
  - Pneumonia aspiration [Recovered/Resolved]
  - Human herpesvirus 6 encephalitis [Recovering/Resolving]
  - Encephalitis viral [Recovering/Resolving]
  - Human herpesvirus 6 infection [Recovered/Resolved]
  - Enterocolitis [Recovered/Resolved]
  - Off label use [Unknown]
